FAERS Safety Report 20913524 (Version 2)
Quarter: 2022Q3

REPORT INFORMATION
  Report Type: Report from Study
  Country: US (occurrence: US)
  Receive Date: 20220603
  Receipt Date: 20220713
  Transmission Date: 20221027
  Serious: Yes (Hospitalization, Other)
  Sender: FDA-Public Use
  Company Number: US-ABBVIE-22K-163-4420916-00

PATIENT
  Sex: Female

DRUGS (3)
  1. IMBRUVICA [Suspect]
     Active Substance: IBRUTINIB
     Indication: Product used for unknown indication
     Route: 048
  2. IMBRUVICA [Suspect]
     Active Substance: IBRUTINIB
     Route: 048
     Dates: start: 202201, end: 202205
  3. IMBRUVICA [Suspect]
     Active Substance: IBRUTINIB
     Route: 048
     Dates: start: 202205, end: 20220615

REACTIONS (18)
  - Chronic kidney disease [Unknown]
  - Liver disorder [Unknown]
  - Pemphigoid [Unknown]
  - Blood creatinine increased [Unknown]
  - White blood cell disorder [Unknown]
  - Unevaluable event [Unknown]
  - Decreased appetite [Unknown]
  - Face oedema [Unknown]
  - Platelet count decreased [Unknown]
  - Weight decreased [Unknown]
  - Swelling [Unknown]
  - Fatigue [Unknown]
  - Nausea [Unknown]
  - Asthenia [Unknown]
  - Contusion [Unknown]
  - Depression [Unknown]
  - Hepatic enzyme abnormal [Unknown]
  - Blood uric acid abnormal [Unknown]

NARRATIVE: CASE EVENT DATE: 20210101
